FAERS Safety Report 11573849 (Version 2)
Quarter: 2016Q1

REPORT INFORMATION
  Report Type: Report from Study
  Country: BR (occurrence: BR)
  Receive Date: 20150929
  Receipt Date: 20160328
  Transmission Date: 20160525
  Serious: Yes (Other)
  Sender: FDA-Public Use
  Company Number: BR-EMD SERONO-8044585

PATIENT
  Age: 46 Year
  Sex: Female
  Weight: 66 kg

DRUGS (1)
  1. REBIF [Suspect]
     Active Substance: INTERFERON BETA-1A
     Indication: MULTIPLE SCLEROSIS
     Route: 058
     Dates: start: 2014, end: 201504

REACTIONS (5)
  - Hepatic cirrhosis [Unknown]
  - Hepatic steatosis [Recovered/Resolved]
  - Blood test abnormal [Recovered/Resolved]
  - Blood cholesterol abnormal [Recovered/Resolved]
  - Blood triglycerides abnormal [Recovered/Resolved]

NARRATIVE: CASE EVENT DATE: 201504
